FAERS Safety Report 8936678 (Version 1)
Quarter: 2012Q4

REPORT INFORMATION
  Report Type: 
  Country: FR (occurrence: FR)
  Receive Date: 20121130
  Receipt Date: 20121130
  Transmission Date: 20130627
  Serious: Yes (Disabling)
  Sender: FDA-Public Use
  Company Number: FR-ROCHE-1160094

PATIENT
  Age: 40 Year
  Sex: Female

DRUGS (5)
  1. PEGASYS [Suspect]
     Indication: POLYCYTHAEMIA VERA
     Route: 058
     Dates: start: 2007
  2. ASPIRIN [Concomitant]
     Route: 065
  3. ASPEGIC [Concomitant]
     Route: 065
     Dates: start: 199708, end: 200303
  4. VERCYTE [Concomitant]
     Route: 065
     Dates: start: 199708, end: 200303
  5. HYDREA [Concomitant]
     Route: 065
     Dates: start: 200303, end: 2007

REACTIONS (1)
  - Cardiomyopathy [Not Recovered/Not Resolved]
